FAERS Safety Report 8459440-6 (Version None)
Quarter: 2012Q2

REPORT INFORMATION
  Report Type: 
  Country: None (occurrence: None)
  Receive Date: 20120622
  Receipt Date: 20120615
  Transmission Date: 20120825
  Serious: Yes (Other)
  Sender: FDA-Public Use
  Company Number: US-PFIZER INC-2012116937

PATIENT
  Sex: Male
  Weight: 95.2 kg

DRUGS (19)
  1. ASPIRIN [Concomitant]
     Dosage: 81 MG, 1X/DAY
     Route: 048
  2. METFORMIN [Concomitant]
     Dosage: 500 MG, 2X/DAY
     Route: 048
  3. BENZONATATE [Concomitant]
     Indication: UPPER RESPIRATORY TRACT INFECTION
  4. PRAVASTATIN [Concomitant]
     Indication: OSTEOARTHRITIS
     Dosage: 40 MG, 1X/DAY AT BED TIME
     Route: 048
  5. FLEXERIL [Concomitant]
     Indication: OSTEOARTHRITIS
     Dosage: 10 MG, ONCE AT NIGHT AS NEEDED
  6. FINASTERIDE [Concomitant]
     Dosage: 5 MG, 1X/DAY
     Route: 048
  7. BENZONATATE [Concomitant]
     Indication: COUGH
     Dosage: 100 MG, 3X/DAY AS NEEDED
     Route: 048
  8. ASTEPRO [Concomitant]
     Indication: UPPER RESPIRATORY TRACT INFECTION
     Dosage: 205.5 MCG PER INHALTION, 2 SPRAYS INTRANASALLY 2X/DAY
     Route: 045
  9. NAPROXEN [Concomitant]
     Indication: OSTEOARTHRITIS
     Dosage: 500 MG, 2X/DAY
     Route: 048
  10. LISINOPRIL [Concomitant]
     Indication: BLOOD PRESSURE
     Dosage: 20 MG, 1X/DAY
     Route: 048
  11. NITROGLYCERIN [Concomitant]
     Indication: CHEST PAIN
     Dosage: 0.4 MG, EVERY 5 MIN X 3
     Route: 060
  12. LYRICA [Suspect]
     Indication: BURNING FEET SYNDROME
     Dosage: 50 MG, 2X/DAY
     Dates: start: 20120401, end: 20120101
  13. SYMBICORT [Concomitant]
     Dosage: 80 MCG - 4.5 MCG/INHALATION, 2 PUFFS INHALED 2 TIMES A DAY
  14. LIPITOR [Concomitant]
     Indication: BLOOD CHOLESTEROL ABNORMAL
     Dosage: 20 MG, DAILY
  15. COREG [Concomitant]
     Indication: OSTEOARTHRITIS
     Dosage: 25 MG, 2X/DAY
     Route: 048
  16. VIAGRA [Concomitant]
     Indication: SEXUAL DYSFUNCTION
     Dosage: 50 MG, 30 MINUTE BEFORE SEXUAL ACTIVITY
     Route: 048
  17. FLEXERIL [Concomitant]
     Indication: MUSCLE SPASMS
  18. GLIPIZIDE [Concomitant]
     Indication: DIABETES MELLITUS
     Dosage: 10 MG, 1X/DAY
     Route: 048
  19. FOLIC ACID [Concomitant]
     Dosage: 1 MG, 1X/DAY
     Route: 048

REACTIONS (2)
  - DYSPNOEA [None]
  - PHARYNGEAL OEDEMA [None]
